APPROVED DRUG PRODUCT: IBUPROFEN
Active Ingredient: IBUPROFEN
Strength: 600MG
Dosage Form/Route: TABLET;ORAL
Application: A078132 | Product #002
Applicant: NORTHSTAR HEALTHCARE HOLDINGS
Approved: Sep 10, 2007 | RLD: No | RS: No | Type: DISCN